FAERS Safety Report 5177545-2 (Version None)
Quarter: 2006Q4

REPORT INFORMATION
  Report Type: 
  Country: None (occurrence: None)
  Receive Date: 20061218
  Receipt Date: 20061121
  Transmission Date: 20070319
  Serious: Yes (Hospitalization)
  Sender: FDA-Public Use
  Company Number: GB-BOEHRINGER INGELHEIM PHARMACEUTICALS, INC.-2006-UK-04724UK

PATIENT
  Sex: Female

DRUGS (1)
  1. DIXARIT [Suspect]
     Indication: RESTLESS LEGS SYNDROME
     Dosage: 100 MCG 4 TIMES PER DAY
     Dates: start: 19950512, end: 20020816

REACTIONS (6)
  - ABDOMINAL PAIN [None]
  - DIVERTICULITIS [None]
  - HYPERTENSION [None]
  - MAJOR DEPRESSION [None]
  - SOCIAL PHOBIA [None]
  - VOMITING PROJECTILE [None]
